FAERS Safety Report 21911467 (Version 1)
Quarter: 2023Q1

REPORT INFORMATION
  Report Type: Spontaneous
  Country: US (occurrence: US)
  Receive Date: 20230125
  Receipt Date: 20230125
  Transmission Date: 20230418
  Serious: No
  Sender: FDA-Public Use
  Company Number: US-ALLERGAN-2218842US

PATIENT

DRUGS (1)
  1. BOTOX [Suspect]
     Active Substance: ONABOTULINUMTOXINA
     Indication: Skin wrinkling
     Dosage: 14 UNITS, SINGLE
     Dates: start: 20220523, end: 20220523

REACTIONS (4)
  - Product preparation error [Unknown]
  - Multiple use of single-use product [Unknown]
  - Off label use [Unknown]
  - Drug ineffective for unapproved indication [Unknown]
